FAERS Safety Report 19245976 (Version 2)
Quarter: 2021Q2

REPORT INFORMATION
  Report Type: Spontaneous
  Country: US (occurrence: US)
  Receive Date: 20210512
  Receipt Date: 20210512
  Transmission Date: 20210717
  Serious: Yes (Hospitalization, Other)
  Sender: FDA-Public Use
  Company Number: US-CELGENEUS-USA-20210501082

PATIENT
  Sex: Female
  Weight: 89.44 kg

DRUGS (1)
  1. THALOMID [Suspect]
     Active Substance: THALIDOMIDE
     Indication: PLASMA CELL MYELOMA
     Dosage: 150 MILLIGRAM
     Route: 048
     Dates: start: 20210107, end: 202103

REACTIONS (6)
  - Constipation [Unknown]
  - Neuropathy peripheral [Unknown]
  - Stomatitis [Unknown]
  - Asthenia [Unknown]
  - Fluid overload [Unknown]
  - Dry skin [Unknown]

NARRATIVE: CASE EVENT DATE: 2021
